FAERS Safety Report 11855185 (Version 1)
Quarter: 2015Q4

REPORT INFORMATION
  Report Type: Spontaneous
  Country: GB (occurrence: GB)
  Receive Date: 20151221
  Receipt Date: 20151221
  Transmission Date: 20160305
  Serious: Yes (Other)
  Sender: FDA-Public Use
  Company Number: GB-WATSON-2015-14687

PATIENT
  Age: 8 Year
  Sex: Female

DRUGS (2)
  1. DESMOMELT [Concomitant]
     Indication: ENURESIS
     Dosage: 240 ?G, UNK
     Route: 065
     Dates: start: 20140414
  2. OXYBUTYNIN (UNKNOWN) [Suspect]
     Active Substance: OXYBUTYNIN
     Indication: ENURESIS
     Dosage: 2.5 MG, UNK
     Route: 065
     Dates: start: 20150421, end: 20150505

REACTIONS (6)
  - Headache [Recovered/Resolved]
  - Polydipsia [Recovered/Resolved]
  - Vision blurred [Recovered/Resolved]
  - Abdominal pain upper [Recovered/Resolved]
  - Personality change [Recovered/Resolved]
  - Dry mouth [Recovered/Resolved]

NARRATIVE: CASE EVENT DATE: 20150428
